FAERS Safety Report 8375805-5 (Version None)
Quarter: 2012Q2

REPORT INFORMATION
  Report Type: 
  Country: None (occurrence: None)
  Receive Date: 20120518
  Receipt Date: 20120518
  Transmission Date: 20120825
  Serious: Yes (Death)
  Sender: FDA-Public Use
  Company Number: None

PATIENT
  Age: 61 Year
  Sex: Female

DRUGS (6)
  1. PERCOCET [Concomitant]
  2. LETAIRIS [Suspect]
     Indication: PULMONARY HYPERTENSION
     Dosage: 10MG DAILY ORALLY
     Route: 048
     Dates: start: 20110301, end: 20120501
  3. WARFARIN SODIUM [Concomitant]
  4. FLUCONAZOLE [Concomitant]
  5. OMEPRAZOLE [Concomitant]
  6. LEVOTHROID [Concomitant]

REACTIONS (3)
  - CACHEXIA [None]
  - WEIGHT DECREASED [None]
  - EATING DISORDER [None]
